FAERS Safety Report 13271215 (Version 1)
Quarter: 2017Q1

REPORT INFORMATION
  Report Type: Spontaneous
  Country: CL (occurrence: CL)
  Receive Date: 20170226
  Receipt Date: 20170226
  Transmission Date: 20170428
  Serious: Yes (Death, Hospitalization)
  Sender: FDA-Public Use
  Company Number: PHHY2017CL029877

PATIENT
  Sex: Female

DRUGS (1)
  1. AFINITOR [Suspect]
     Active Substance: EVEROLIMUS
     Indication: BREAST CANCER METASTATIC
     Dosage: 10 MG, QD
     Route: 048
     Dates: start: 20161210, end: 20161228

REACTIONS (4)
  - Respiratory disorder [Fatal]
  - Malignant neoplasm progression [Fatal]
  - Thrombocytopenia [Fatal]
  - Breast cancer metastatic [Fatal]

NARRATIVE: CASE EVENT DATE: 20161228
